FAERS Safety Report 5058584-9 (Version None)
Quarter: 2006Q3

REPORT INFORMATION
  Report Type: 
  Country: None (occurrence: None)
  Receive Date: 20060721
  Receipt Date: 20050408
  Transmission Date: 20061208
  Serious: No
  Sender: FDA-Public Use
  Company Number: US-AMGEN-KDL126404

PATIENT
  Age: 48 Year
  Sex: Female

DRUGS (1)
  1. PROCRIT [Suspect]
     Indication: PRE-EXISTING DISEASE
     Route: 058
     Dates: start: 20050201

REACTIONS (4)
  - ASTHENIA [None]
  - HEADACHE [None]
  - LETHARGY [None]
  - MALAISE [None]
